FAERS Safety Report 19782070 (Version 2)
Quarter: 2021Q3

REPORT INFORMATION
  Report Type: Spontaneous
  Country: US (occurrence: US)
  Receive Date: 20210902
  Receipt Date: 20210913
  Transmission Date: 20211014
  Serious: Yes (Other)
  Sender: FDA-Public Use
  Company Number: US-PFIZER INC-202101104360

PATIENT
  Age: 3 Decade
  Sex: Female

DRUGS (1)
  1. ONDANSETRON [Suspect]
     Active Substance: ONDANSETRON
     Route: 042

REACTIONS (3)
  - Dystonia [Unknown]
  - Oculogyric crisis [Unknown]
  - Torticollis [Unknown]
